FAERS Safety Report 4866914-3 (Version None)
Quarter: 2005Q4

REPORT INFORMATION
  Report Type: 
  Country: None (occurrence: None)
  Receive Date: 20051222
  Receipt Date: 20051209
  Transmission Date: 20060501
  Serious: Yes (Other)
  Sender: FDA-Public Use
  Company Number: 2005161139

PATIENT
  Age: 69 Year
  Sex: Male

DRUGS (1)
  1. SILDENAFIL CITRATE [Suspect]
     Indication: ILL-DEFINED DISORDER
     Dosage: 50 MG, ORAL
     Route: 048

REACTIONS (1)
  - HAEMOPTYSIS [None]
